FAERS Safety Report 20365825 (Version 2)
Quarter: 2025Q1

REPORT INFORMATION
  Report Type: Spontaneous
  Country: IN (occurrence: IN)
  Receive Date: 20220123
  Receipt Date: 20250225
  Transmission Date: 20250409
  Serious: Yes (Hospitalization)
  Sender: LUPIN
  Company Number: IN-LUPIN PHARMACEUTICALS INC.-2022-00607

PATIENT
  Age: 46 Year
  Sex: Female

DRUGS (10)
  1. ETHAMBUTOL [Suspect]
     Active Substance: ETHAMBUTOL HYDROCHLORIDE
     Indication: Tuberculosis gastrointestinal
     Dosage: 800 MILLIGRAM, QD
     Route: 065
  2. ISONIAZID [Concomitant]
     Active Substance: ISONIAZID
     Indication: Tuberculosis gastrointestinal
     Dosage: 300 MILLIGRAM, QD
     Route: 065
  3. ISONIAZID [Concomitant]
     Active Substance: ISONIAZID
     Route: 065
  4. ISONIAZID [Concomitant]
     Active Substance: ISONIAZID
     Dosage: 300 MILLIGRAM, QD
     Route: 065
  5. RIFAMPIN [Concomitant]
     Active Substance: RIFAMPIN
     Indication: Tuberculosis gastrointestinal
     Dosage: 600 MILLIGRAM, QD
     Route: 065
  6. RIFAMPIN [Concomitant]
     Active Substance: RIFAMPIN
     Dosage: 600 MILLIGRAM, QD
     Route: 065
  7. PYRAZINAMIDE [Concomitant]
     Active Substance: PYRAZINAMIDE
     Indication: Tuberculosis gastrointestinal
     Dosage: 1.5 GRAM, QD
     Route: 065
  8. PYRAZINAMIDE [Concomitant]
     Active Substance: PYRAZINAMIDE
     Dosage: 1.5 GRAM, QD
     Route: 065
  9. PYRIDOXINE [Concomitant]
     Active Substance: PYRIDOXINE
     Indication: Tuberculosis gastrointestinal
     Dosage: 40 MILLIGRAM, QD
     Route: 065
  10. OFLOXACIN [Concomitant]
     Active Substance: OFLOXACIN
     Indication: Tuberculosis gastrointestinal
     Dosage: 400 MILLIGRAM, QD
     Route: 065

REACTIONS (1)
  - Mania [Recovered/Resolved]
